FAERS Safety Report 17575427 (Version 2)
Quarter: 2020Q1

REPORT INFORMATION
  Report Type: Spontaneous
  Country: ES (occurrence: ES)
  Receive Date: 20200324
  Receipt Date: 20200326
  Transmission Date: 20200409
  Serious: Yes (Other)
  Sender: FDA-Public Use
  Company Number: ES-TEVA-2020-ES-1207874

PATIENT
  Age: 48 Year
  Sex: Male
  Weight: 121 kg

DRUGS (1)
  1. AMOXICILINA 750 MG COMPRIMIDO [Suspect]
     Active Substance: AMOXICILLIN
     Indication: TOOTH ABSCESS
     Dosage: 750 MG
     Route: 048
     Dates: start: 20200202, end: 20200205

REACTIONS (3)
  - Parapsoriasis [Recovered/Resolved]
  - Face oedema [Recovered/Resolved]
  - Erythema [Recovered/Resolved]

NARRATIVE: CASE EVENT DATE: 20200203
